FAERS Safety Report 11967804 (Version 1)
Quarter: 2016Q1

REPORT INFORMATION
  Report Type: Report from Study
  Country: US (occurrence: US)
  Receive Date: 20160127
  Receipt Date: 20160127
  Transmission Date: 20160526
  Serious: No
  Sender: FDA-Public Use
  Company Number: US-ABBVIE-15K-163-1385976-00

PATIENT
  Sex: Male
  Weight: 81.72 kg

DRUGS (1)
  1. HUMIRA [Suspect]
     Active Substance: ADALIMUMAB
     Indication: COLITIS ULCERATIVE
     Dosage: 8-10 MONTHS
     Route: 058
     Dates: start: 2014

REACTIONS (9)
  - Asthenia [Recovering/Resolving]
  - Faeces discoloured [Recovered/Resolved]
  - Lyme disease [Unknown]
  - Blood iron decreased [Unknown]
  - Memory impairment [Recovering/Resolving]
  - Abdominal pain upper [Recovered/Resolved]
  - Fatigue [Not Recovered/Not Resolved]
  - Vitamin B12 decreased [Unknown]
  - Speech disorder [Recovering/Resolving]

NARRATIVE: CASE EVENT DATE: 2014
